FAERS Safety Report 16261940 (Version 20)
Quarter: 2020Q4

REPORT INFORMATION
  Report Type: Report from Study
  Country: US (occurrence: US)
  Receive Date: 20190501
  Receipt Date: 20201109
  Transmission Date: 20210113
  Serious: Yes (Hospitalization)
  Sender: FDA-Public Use
  Company Number: US-EISAI MEDICAL RESEARCH-EC-2019-055858

PATIENT
  Age: 61 Year
  Sex: Female
  Weight: 55.5 kg

DRUGS (18)
  1. PEMBROLIZUMAB. [Suspect]
     Active Substance: PEMBROLIZUMAB
     Route: 041
     Dates: start: 20190410, end: 20190410
  2. THERATEARS [Concomitant]
     Active Substance: CARBOXYMETHYLCELLULOSE SODIUM
     Dates: start: 20180412
  3. PROBIOTICS [Concomitant]
     Active Substance: PROBIOTICS NOS
     Dates: start: 20180131
  4. PEMBROLIZUMAB. [Suspect]
     Active Substance: PEMBROLIZUMAB
     Indication: ENDOMETRIAL CANCER
     Route: 041
     Dates: start: 20190320, end: 20190320
  5. PEMBROLIZUMAB. [Suspect]
     Active Substance: PEMBROLIZUMAB
     Route: 041
     Dates: start: 20190522
  6. OXYCODONE [Concomitant]
     Active Substance: OXYCODONE
     Dates: start: 20190403, end: 20190516
  7. ACETAMINOPHEN. [Concomitant]
     Active Substance: ACETAMINOPHEN
     Dates: start: 20180420
  8. ADAPALENE. [Concomitant]
     Active Substance: ADAPALENE
     Dates: start: 20100613
  9. LENVATINIB [Suspect]
     Active Substance: LENVATINIB
     Indication: ENDOMETRIAL CANCER
     Route: 048
     Dates: start: 20190320, end: 20190417
  10. LENVATINIB [Suspect]
     Active Substance: LENVATINIB
     Route: 048
     Dates: start: 20190511
  11. LOSARTAN. [Concomitant]
     Active Substance: LOSARTAN
     Dates: start: 20190411
  12. DERMATOLOGIC [Concomitant]
     Dates: start: 20190410
  13. DIPHENHYDRAMINE. [Concomitant]
     Active Substance: DIPHENHYDRAMINE
     Dates: start: 20180131
  14. LENVATINIB [Suspect]
     Active Substance: LENVATINIB
     Route: 048
     Dates: start: 20190419, end: 20190423
  15. MELATONIN [Concomitant]
     Active Substance: MELATONIN
     Dates: start: 20190403
  16. AMLODIPINE [Concomitant]
     Active Substance: AMLODIPINE BESYLATE
     Dates: start: 20190403
  17. LOSARTAN. [Concomitant]
     Active Substance: LOSARTAN
     Indication: HYPERTENSION
     Dates: start: 20190327, end: 20190410
  18. CALCIUM CARBONATE. [Concomitant]
     Active Substance: CALCIUM CARBONATE
     Dates: start: 20190403, end: 20190510

REACTIONS (1)
  - Device related infection [Recovered/Resolved]

NARRATIVE: CASE EVENT DATE: 20190424
